FAERS Safety Report 5127515-5 (Version None)
Quarter: 2006Q4

REPORT INFORMATION
  Report Type: 
  Country: None (occurrence: None)
  Receive Date: 20061016
  Receipt Date: 20061004
  Transmission Date: 20070319
  Serious: Yes (Hospitalization)
  Sender: FDA-Public Use
  Company Number: IT-BAYER-200614545GDS

PATIENT
  Age: 56 Year
  Sex: Female
  Weight: 59 kg

DRUGS (4)
  1. SORAFENIB [Suspect]
     Indication: BILE DUCT CANCER
     Dosage: TOTAL DAILY DOSE: 400 MG
     Route: 048
     Dates: start: 20060808, end: 20061003
  2. LANSOX [Concomitant]
     Indication: PROPHYLAXIS
     Route: 048
     Dates: start: 20060808
  3. DELTACORTENE FORTE - PREDNISONE [Concomitant]
     Indication: PAIN
     Route: 048
     Dates: start: 20060808
  4. NEORECORMON - EPOIETINE BETA [Concomitant]
     Indication: ANAEMIA
     Route: 030
     Dates: start: 20060808

REACTIONS (1)
  - PULMONARY EMBOLISM [None]
